FAERS Safety Report 13635960 (Version 1)
Quarter: 2017Q2

REPORT INFORMATION
  Report Type: Spontaneous
  Country: US (occurrence: US)
  Receive Date: 20170531
  Receipt Date: 20170531
  Transmission Date: 20170830
  Serious: No
  Sender: FDA-Public Use
  Company Number: US-ASTELLAS-1761182

PATIENT
  Sex: Female

DRUGS (3)
  1. TAGRISSO [Concomitant]
     Active Substance: OSIMERTINIB
  2. PRAVASTATIN. [Concomitant]
     Active Substance: PRAVASTATIN
     Indication: BLOOD CHOLESTEROL
  3. TARCEVA [Suspect]
     Active Substance: ERLOTINIB HYDROCHLORIDE
     Indication: LUNG NEOPLASM MALIGNANT
     Route: 048
     Dates: end: 20160518

REACTIONS (8)
  - Onychoclasis [Unknown]
  - Skin fissures [Unknown]
  - Fatigue [Unknown]
  - Oropharyngeal pain [Unknown]
  - Drug effect decreased [Unknown]
  - Arthralgia [Unknown]
  - Myalgia [Unknown]
  - Rhinorrhoea [Unknown]
